FAERS Safety Report 5146550-4 (Version None)
Quarter: 2006Q4

REPORT INFORMATION
  Report Type: 
  Country: None (occurrence: None)
  Receive Date: 20061107
  Receipt Date: 20061107
  Transmission Date: 20070319
  Serious: No
  Sender: FDA-Public Use
  Company Number: None

PATIENT
  Age: 2 Year
  Sex: Female
  Weight: 12.2471 kg

DRUGS (2)
  1. CHILDREN'S IBUPROFEN [Suspect]
     Dosage: 5ML SYRINGE DOSE    PO
     Route: 048
  2. VALPROIC ACID SYRUP [Suspect]
     Dosage: 5ML SYRINGE DOSE    PO
     Route: 048

REACTIONS (4)
  - CIRCUMSTANCE OR INFORMATION CAPABLE OF LEADING TO MEDICATION ERROR [None]
  - INTERCEPTED DRUG DISPENSING ERROR [None]
  - MEDICATION ERROR [None]
  - PHARMACEUTICAL PRODUCT COMPLAINT [None]
